FAERS Safety Report 8138035-8 (Version None)
Quarter: 2012Q1

REPORT INFORMATION
  Report Type: 
  Country: None (occurrence: None)
  Receive Date: 20120215
  Receipt Date: 20120208
  Transmission Date: 20120608
  Serious: Yes (Other)
  Sender: FDA-Public Use
  Company Number: US-PFIZER INC-2012035463

PATIENT
  Sex: Female
  Weight: 76.64 kg

DRUGS (16)
  1. PROZAC [Suspect]
     Indication: DEPRESSION
     Dosage: 20 MG, 3X/DAY
     Dates: start: 20111101
  2. WELLBUTRIN [Suspect]
     Indication: DEPRESSION
     Dosage: 100 MG, 3X/DAY
     Dates: start: 20111101
  3. OXYCODONE [Concomitant]
     Indication: BREAKTHROUGH PAIN
     Dosage: 5 MG, AS NEEDED
  4. DEHYDROEPIANDROSTERONE [Concomitant]
     Indication: SUPPLEMENTATION THERAPY
     Dosage: 25 MG, DAILY
  5. VENLAFAXINE HCL [Suspect]
     Indication: DEPRESSION
     Dosage: UNK
     Dates: start: 20110101, end: 20110101
  6. LEVOTHYROXINE [Concomitant]
     Indication: THYROID DISORDER
     Dosage: 0.075 MG DAILY
  7. CLONAZEPAM [Concomitant]
     Indication: SLEEP DISORDER
     Dosage: 2 MG, 1X/DAY
  8. ROPINIROLE [Concomitant]
     Indication: RESTLESS LEGS SYNDROME
     Dosage: 1 MG, 2X/DAY
  9. EFFEXOR XR [Suspect]
     Indication: DEPRESSION
     Dosage: UNK
     Dates: end: 20110101
  10. HYDROXYCHLOROQUINE [Concomitant]
     Indication: INFLAMMATION
  11. FISH OIL [Concomitant]
     Indication: SUPPLEMENTATION THERAPY
     Dosage: 120 MG, DAILY
  12. HYDROXYCHLOROQUINE [Concomitant]
     Indication: PAIN
     Dosage: 200 MG, 2X/DAY
  13. FOLIC ACID [Concomitant]
     Indication: SUPPLEMENTATION THERAPY
     Dosage: 100 UG, DAILY
  14. OXYCONTIN [Concomitant]
     Indication: PAIN
     Dosage: 40 MG, 3X/DAY
  15. COENZYME Q10 [Concomitant]
     Indication: SUPPLEMENTATION THERAPY
     Dosage: 100 MG, DAILY
  16. VITAMIN D [Concomitant]
     Indication: SUPPLEMENTATION THERAPY
     Dosage: TWO TABLETS DAILY

REACTIONS (4)
  - CHRONIC OBSTRUCTIVE PULMONARY DISEASE [None]
  - ULCER [None]
  - DRUG INEFFECTIVE [None]
  - DEPRESSION [None]
